FAERS Safety Report 7209426-4 (Version None)
Quarter: 2011Q1

REPORT INFORMATION
  Report Type: 
  Country: None (occurrence: None)
  Receive Date: 20110104
  Receipt Date: 20101112
  Transmission Date: 20110831
  Serious: Yes (Other)
  Sender: FDA-Public Use
  Company Number: US-BAYER-201029194NA

PATIENT
  Sex: Female

DRUGS (3)
  1. HYDROCODONE [Concomitant]
     Indication: ABDOMINAL PAIN UPPER
  2. UNCODEABLE ^UNCLASSIFIABLE^ [Concomitant]
     Indication: ABDOMINAL PAIN UPPER
  3. YAZ [Suspect]
     Indication: PRODUCT USED FOR UNKNOWN INDICATION
     Route: 048
     Dates: start: 20090101, end: 20090901

REACTIONS (8)
  - PULMONARY CONGESTION [None]
  - CYSTITIS [None]
  - COUGH [None]
  - GALLBLADDER DISORDER [None]
  - WHEEZING [None]
  - EAR PAIN [None]
  - ABDOMINAL PAIN [None]
  - CHILLS [None]
